FAERS Safety Report 8829800 (Version 1)
Quarter: 2012Q4

REPORT INFORMATION
  Report Type: 
  Country: AR (occurrence: AR)
  Receive Date: 20121008
  Receipt Date: 20121008
  Transmission Date: 20130627
  Serious: Yes (Other)
  Sender: FDA-Public Use
  Company Number: AR-BAYER-2012-101303

PATIENT
  Age: 52 Year
  Sex: Female

DRUGS (3)
  1. ACETYLSALICYLIC ACID (} 100 MG) [Suspect]
  2. PARACETAMOL [Suspect]
  3. DICLOFENAC [Suspect]

REACTIONS (5)
  - Bronchospasm [Unknown]
  - Angioedema [Unknown]
  - Urticaria [Unknown]
  - Urticaria chronic [Unknown]
  - Rhinitis [Unknown]
